FAERS Safety Report 23261584 (Version 1)
Quarter: 2023Q4

REPORT INFORMATION
  Report Type: Spontaneous
  Country: US (occurrence: US)
  Receive Date: 20231205
  Receipt Date: 20231205
  Transmission Date: 20240109
  Serious: Yes (Other)
  Sender: FDA-Public Use
  Company Number: US-MLMSERVICE-20231121-4674461-1

PATIENT

DRUGS (6)
  1. TESTOSTERONE [Suspect]
     Active Substance: TESTOSTERONE
     Indication: Transgender hormonal therapy
     Dosage: 200 MG/ML, 1 EVERY WEEK
     Route: 065
  2. TESTOSTERONE [Suspect]
     Active Substance: TESTOSTERONE
     Dosage: 60 MILLIGRAM, 1 EVERY WEEK
     Route: 065
  3. TESTOSTERONE [Suspect]
     Active Substance: TESTOSTERONE
     Dosage: 80 MILLIGRAM, 1 EVERY WEEK
     Route: 065
  4. TESTOSTERONE [Suspect]
     Active Substance: TESTOSTERONE
     Dosage: 60 MILLIGRAM, 1 EVERY WEEK
     Route: 065
  5. CABERGOLINE [Concomitant]
     Active Substance: CABERGOLINE
     Indication: Pituitary tumour benign
     Dosage: 0.5 MILLIGRAM, TWICE WEEKLY
     Route: 065
  6. CABERGOLINE [Concomitant]
     Active Substance: CABERGOLINE
     Dosage: 1 MILLIGRAM, TWICE WEEKLY
     Route: 065

REACTIONS (1)
  - Hyperprolactinaemia [Unknown]
